FAERS Safety Report 9039375 (Version 1)
Quarter: 2013Q1

REPORT INFORMATION
  Report Type: Report from Study
  Country: US (occurrence: US)
  Receive Date: 20130129
  Receipt Date: 20130129
  Transmission Date: 20140127
  Serious: No
  Sender: FDA-Public Use
  Company Number: US-ABBOTT-12P-163-0932817-00

PATIENT
  Age: 50 Year
  Sex: Female

DRUGS (5)
  1. HUMIRA 40 MG/0.8 ML PEN [Suspect]
     Indication: RHEUMATOID ARTHRITIS
     Dates: start: 20120210
  2. SINGULAIR [Concomitant]
     Indication: HYPERSENSITIVITY
     Dosage: 10MG DAILY; BEEN TAKING FOR YEARS
  3. ISONIAZID [Concomitant]
     Indication: PRODUCT USED FOR UNKNOWN INDICATION
     Dosage: WITH PENICILLIN
  4. PENICILLIN [Concomitant]
     Indication: PRODUCT USED FOR UNKNOWN INDICATION
  5. VITAMIN B6 [Concomitant]
     Indication: TUBERCULOSIS
     Dosage: 50MG DAILY
     Dates: start: 201202

REACTIONS (5)
  - Musculoskeletal stiffness [Not Recovered/Not Resolved]
  - Arthralgia [Not Recovered/Not Resolved]
  - Wrong technique in drug usage process [Not Recovered/Not Resolved]
  - Unevaluable event [Not Recovered/Not Resolved]
  - Incorrect dose administered [Not Recovered/Not Resolved]
